APPROVED DRUG PRODUCT: SERNIVO
Active Ingredient: BETAMETHASONE DIPROPIONATE
Strength: EQ 0.05% BASE/SPRAY
Dosage Form/Route: SPRAY;TOPICAL
Application: N208079 | Product #001
Applicant: PRIMUS PHARMACEUTICALS INC
Approved: Feb 5, 2016 | RLD: Yes | RS: Yes | Type: RX

PATENTS:
Patent 9775851 | Expires: Aug 31, 2030
Patent 9364485 | Expires: Aug 31, 2030
Patent 9655907 | Expires: Aug 31, 2030
Patent 10179137 | Expires: Aug 31, 2030
Patent 9433630 | Expires: Aug 31, 2030
Patent 9877974 | Expires: Aug 31, 2030
Patent 9439911 | Expires: Aug 31, 2030